FAERS Safety Report 5772213-8 (Version None)
Quarter: 2008Q2

REPORT INFORMATION
  Report Type: 
  Country: None (occurrence: None)
  Receive Date: 20080611
  Receipt Date: 20080602
  Transmission Date: 20081010
  Serious: Yes (Other)
  Sender: FDA-Public Use
  Company Number: GXKR2008JP05010

PATIENT

DRUGS (1)
  1. THEOPHYLLINE [Suspect]

REACTIONS (3)
  - ENCEPHALOPATHY [None]
  - FEBRILE CONVULSION [None]
  - STATUS EPILEPTICUS [None]
